FAERS Safety Report 15294928 (Version 1)
Quarter: 2018Q3

REPORT INFORMATION
  Report Type: Report from Study
  Country: US (occurrence: US)
  Receive Date: 20180820
  Receipt Date: 20180820
  Transmission Date: 20181010
  Serious: Yes (Death)
  Sender: FDA-Public Use
  Company Number: US-US WORLDMEDS, LLC-USW201808-001177

PATIENT
  Age: 80 Year
  Sex: Female

DRUGS (14)
  1. VALSARTAN. [Concomitant]
     Active Substance: VALSARTAN
  2. LEVOTHYROXINE. [Concomitant]
     Active Substance: LEVOTHYROXINE
  3. METOPROLOL. [Concomitant]
     Active Substance: METOPROLOL
  4. NUPLAZID [Concomitant]
     Active Substance: PIMAVANSERIN TARTRATE
  5. RYTARY [Concomitant]
     Active Substance: CARBIDOPA\LEVODOPA
  6. APOKYN [Suspect]
     Active Substance: APOMORPHINE HYDROCHLORIDE
     Indication: PARKINSON^S DISEASE
     Route: 058
  7. HYDROCHLOROTHIAZIDE. [Concomitant]
     Active Substance: HYDROCHLOROTHIAZIDE
  8. HUMALOG MIX75/25 [Concomitant]
     Active Substance: INSULIN LISPRO
  9. SIMVASTAT [Concomitant]
  10. AMANTADINE. [Concomitant]
     Active Substance: AMANTADINE HYDROCHLORIDE
  11. ASPIRIN. [Concomitant]
     Active Substance: ASPIRIN
  12. GABAPENTIN. [Concomitant]
     Active Substance: GABAPENTIN
  13. REGLAN [Concomitant]
     Active Substance: METOCLOPRAMIDE HYDROCHLORIDE
  14. TRIMETHOBENZAMIDE [Concomitant]
     Active Substance: TRIMETHOBENZAMIDE

REACTIONS (1)
  - Death [Fatal]

NARRATIVE: CASE EVENT DATE: 20180805
